FAERS Safety Report 17508933 (Version 1)
Quarter: 2020Q1

REPORT INFORMATION
  Report Type: Spontaneous
  Country: GB (occurrence: GB)
  Receive Date: 20200306
  Receipt Date: 20200306
  Transmission Date: 20200409
  Serious: Yes (Disabling, Other)
  Sender: FDA-Public Use
  Company Number: GB-PFIZER INC-2020095038

PATIENT
  Age: 73 Year
  Sex: Female
  Weight: 75 kg

DRUGS (7)
  1. TAZOCIN [Suspect]
     Active Substance: PIPERACILLIN SODIUM\TAZOBACTAM SODIUM
     Indication: URINARY TRACT INFECTION
     Dosage: 2G/0.25G, UNK
     Route: 042
     Dates: end: 20191027
  2. CIPROFLOXACIN. [Concomitant]
     Active Substance: CIPROFLOXACIN
     Indication: URINARY TRACT INFECTION
     Dosage: UNK
     Route: 048
  3. PROCHLORPERAZINE. [Concomitant]
     Active Substance: PROCHLORPERAZINE
     Indication: NAUSEA
     Dosage: 15 MG, 1X/DAY (WHEN REQUIRED)
     Dates: start: 20191119
  4. HYDROXOCOBALAMIN [Concomitant]
     Active Substance: HYDROXOCOBALAMIN
     Dosage: 1MG/1ML
     Dates: start: 20191202
  5. CINNARIZINE [Concomitant]
     Active Substance: CINNARIZINE
     Dosage: 1 OR 2 TABLETS. UP TO THREE TIMES DAILY
     Dates: start: 20200204
  6. TRIMETHOPRIM. [Concomitant]
     Active Substance: TRIMETHOPRIM
     Indication: URINARY TRACT INFECTION
     Dosage: UNK
     Route: 048
  7. BETNOVATE [Concomitant]
     Active Substance: BETAMETHASONE
     Dosage: 4 DF, 1X/DAY (FOR 7 DAYS)
     Dates: start: 20191112

REACTIONS (4)
  - Hypoacusis [Not Recovered/Not Resolved]
  - Nausea [Unknown]
  - Ear pain [Recovering/Resolving]
  - Vertigo [Not Recovered/Not Resolved]

NARRATIVE: CASE EVENT DATE: 20191025
